FAERS Safety Report 26142708 (Version 1)
Quarter: 2025Q4

REPORT INFORMATION
  Report Type: Spontaneous
  Country: EU (occurrence: EU)
  Receive Date: 20251211
  Receipt Date: 20251211
  Transmission Date: 20260117
  Serious: Yes (Other)
  Sender: UCB
  Company Number: None

PATIENT
  Weight: 3.2 kg

DRUGS (2)
  1. KEPPRA [Suspect]
     Active Substance: LEVETIRACETAM
     Indication: Myoclonic epilepsy
     Dosage: 750 MILLIGRAM
  2. VALPROATE SODIUM [Suspect]
     Active Substance: VALPROATE SODIUM
     Indication: Myoclonic epilepsy
     Dosage: 850 MILLIGRAM

REACTIONS (5)
  - Magnetic resonance imaging head abnormal [Not Recovered/Not Resolved]
  - Hypoventilation neonatal [Recovered/Resolved]
  - Maternal exposure during pregnancy [Unknown]
  - Term birth [Unknown]
  - Normal newborn [Recovered/Resolved]
